FAERS Safety Report 4317730-2 (Version None)
Quarter: 2004Q1

REPORT INFORMATION
  Report Type: 
  Country: None (occurrence: None)
  Receive Date: 20040312
  Receipt Date: 20040301
  Transmission Date: 20041129
  Serious: Yes (Death)
  Sender: FDA-Public Use
  Company Number: A001-002-005993

PATIENT
  Age: 88 Year
  Sex: Male

DRUGS (1)
  1. ARICEPT [Suspect]
     Dosage: 10 MG, 1 IN 1 D, ORAL
     Route: 048
     Dates: start: 20020101, end: 20040205

REACTIONS (1)
  - MYOCARDIAL INFARCTION [None]
